FAERS Safety Report 10571342 (Version 2)
Quarter: 2015Q1

REPORT INFORMATION
  Report Type: Spontaneous
  Country: US (occurrence: US)
  Receive Date: 20141107
  Receipt Date: 20150204
  Transmission Date: 20150720
  Serious: Yes (Hospitalization, Other)
  Sender: FDA-Public Use
  Company Number: US-BAYER-2014-162394

PATIENT
  Age: 23 Year
  Sex: Female
  Weight: 58.96 kg

DRUGS (2)
  1. HUMALOG [INSULIN] [Concomitant]
     Indication: TYPE 1 DIABETES MELLITUS
     Dosage: UNK
     Dates: start: 1992
  2. MIRENA [Suspect]
     Active Substance: LEVONORGESTREL
     Indication: CONTRACEPTION
     Dosage: 20 MCG/24HR, CONT
     Route: 015
     Dates: start: 20090429, end: 20111212

REACTIONS (8)
  - Genital haemorrhage [None]
  - Device failure [None]
  - Medical device discomfort [None]
  - Injury [None]
  - Uterine perforation [None]
  - Device issue [None]
  - Pelvic pain [None]
  - Procedural pain [None]

NARRATIVE: CASE EVENT DATE: 20090429
